FAERS Safety Report 8698652 (Version 4)
Quarter: 2013Q2

REPORT INFORMATION
  Report Type: Report from Study
  Country: FR (occurrence: FR)
  Receive Date: 20120802
  Receipt Date: 20130606
  Transmission Date: 20140414
  Serious: Yes (Hospitalization)
  Sender: FDA-Public Use
  Company Number: FR-EISAI INC-E7389-02121-CLI-FR

PATIENT
  Age: 75 Year
  Sex: Female
  Weight: 105 kg

DRUGS (1)
  1. E7389 (BOLD) [Suspect]
     Indication: BREAST CANCER
     Route: 041
     Dates: start: 20111110, end: 20120119

REACTIONS (2)
  - Malaise [Recovered/Resolved]
  - Dyspnoea [Not Recovered/Not Resolved]
